FAERS Safety Report 24953972 (Version 1)
Quarter: 2025Q1

REPORT INFORMATION
  Report Type: Spontaneous
  Country: IE (occurrence: IE)
  Receive Date: 20250211
  Receipt Date: 20250211
  Transmission Date: 20250409
  Serious: Yes (Other)
  Sender: ALKEM
  Company Number: IE-ALKEM LABORATORIES LIMITED-IE-ALKEM-2024-13261

PATIENT
  Age: 57 Year
  Sex: Male

DRUGS (1)
  1. TRIAMCINOLONE ACETONIDE [Suspect]
     Active Substance: TRIAMCINOLONE ACETONIDE
     Indication: Cystoid macular oedema

REACTIONS (2)
  - Eye abscess [Recovered/Resolved]
  - Staphylococcal infection [Recovered/Resolved]
